FAERS Safety Report 9701445 (Version 2)
Quarter: 2013Q4

REPORT INFORMATION
  Report Type: Spontaneous
  Country: US (occurrence: US)
  Receive Date: 20131121
  Receipt Date: 20131121
  Transmission Date: 20140711
  Serious: No
  Sender: FDA-Public Use
  Company Number: US-GILEAD-2008-0016346

PATIENT
  Age: 78 Year
  Sex: Female
  Weight: 56.7 kg

DRUGS (11)
  1. LETAIRIS [Suspect]
     Indication: PULMONARY ARTERIAL HYPERTENSION
     Route: 048
     Dates: start: 20071109
  2. TRIAMTERENE HCTZ [Suspect]
  3. PREDNISONE [Concomitant]
     Route: 048
  4. ATENOLOL [Concomitant]
     Route: 048
  5. LEVOTHYROXIN [Concomitant]
     Route: 048
  6. TESSALON [Concomitant]
     Route: 048
  7. REVATIO [Concomitant]
     Route: 048
  8. CARTIA XT [Concomitant]
     Route: 048
  9. CLONIDINE [Concomitant]
     Route: 048
  10. FOSAMAX [Concomitant]
     Route: 048
  11. OXYGEN [Concomitant]
     Dosage: CONTINOUS
     Route: 045

REACTIONS (3)
  - Oropharyngeal pain [Not Recovered/Not Resolved]
  - Nasal congestion [Not Recovered/Not Resolved]
  - Joint swelling [Not Recovered/Not Resolved]
